FAERS Safety Report 5577388-1 (Version None)
Quarter: 2007Q4

REPORT INFORMATION
  Report Type: 
  Country: None (occurrence: None)
  Receive Date: 20071228
  Receipt Date: 20071217
  Transmission Date: 20080405
  Serious: Yes (Life-Threatening, Hospitalization, Other)
  Sender: FDA-Public Use
  Company Number: US-PFIZER INC-2007105723

PATIENT
  Age: 40 Year
  Sex: Male

DRUGS (1)
  1. VERAPAMIL HYDROCHLORIDE [Suspect]
     Dosage: FREQ:50 DF IN ONE INTAKE

REACTIONS (3)
  - HYPOTENSION [None]
  - MULTI-ORGAN FAILURE [None]
  - OVERDOSE [None]
